FAERS Safety Report 4501862-X (Version None)
Quarter: 2004Q4

REPORT INFORMATION
  Report Type: 
  Country: None (occurrence: None)
  Receive Date: 20041115
  Receipt Date: 20041115
  Transmission Date: 20050328
  Serious: Yes (Hospitalization)
  Sender: FDA-Public Use
  Company Number: None

PATIENT
  Sex: Male
  Weight: 61.2356 kg

DRUGS (1)
  1. DILANTIN [Suspect]
     Indication: CONVULSION
     Dosage: 3 CAPSULES QHS ORAL
     Route: 048
     Dates: start: 20040628, end: 20040713

REACTIONS (3)
  - DIZZINESS [None]
  - DRUG TOXICITY [None]
  - LOSS OF CONSCIOUSNESS [None]
